FAERS Safety Report 7219321-2 (Version None)
Quarter: 2011Q1

REPORT INFORMATION
  Report Type: 
  Country: None (occurrence: None)
  Receive Date: 20110103
  Receipt Date: 20101223
  Transmission Date: 20110831
  Serious: Yes (Death, Life-Threatening, Hospitalization, Other)
  Sender: FDA-Public Use
  Company Number: HA10-311-AE

PATIENT
  Age: 66 Year
  Sex: Male
  Weight: 85 kg

DRUGS (12)
  1. NAPROXEN [Suspect]
     Indication: RHEUMATOID ARTHRITIS
     Dosage: ORAL, BID
     Route: 048
     Dates: start: 20091222, end: 20100926
  2. NAPROXEN [Suspect]
     Indication: OSTEOARTHRITIS
     Dosage: ORAL, BID
     Route: 048
     Dates: start: 20091222, end: 20100926
  3. IBUPROFEN/NAPROXEN; PLACEBO-CODE NOT BROKEN [Suspect]
     Indication: RHEUMATOID ARTHRITIS
     Dosage: BLINDED, INFOR. WITHHELD
     Dates: start: 20091222, end: 20100926
  4. IBUPROFEN/NAPROXEN; PLACEBO-CODE NOT BROKEN [Suspect]
     Indication: OSTEOARTHRITIS
     Dosage: BLINDED, INFOR. WITHHELD
     Dates: start: 20091222, end: 20100926
  5. CELECOXIB [Suspect]
     Indication: OSTEOARTHRITIS
     Dosage: BLINDED, INFO. WITHHELD
     Dates: start: 20091222, end: 20100926
  6. CELECOXIB [Suspect]
     Indication: RHEUMATOID ARTHRITIS
     Dosage: BLINDED, INFO. WITHHELD
     Dates: start: 20091222, end: 20100926
  7. FOLIC ACID (FOLATE) [Concomitant]
  8. CALCIUM CARBONATE [Concomitant]
  9. NEXIUM [Concomitant]
  10. ENALAPRIL MALEATE [Concomitant]
  11. METHOTREXATE [Concomitant]
  12. ASPIRIN [Concomitant]

REACTIONS (5)
  - NOSOCOMIAL INFECTION [None]
  - CEREBROVASCULAR ACCIDENT [None]
  - CEREBRAL HAEMORRHAGE [None]
  - RESPIRATORY FAILURE [None]
  - RESPIRATORY ARREST [None]
